FAERS Safety Report 23759327 (Version 1)
Quarter: 2024Q2

REPORT INFORMATION
  Report Type: Spontaneous
  Country: US (occurrence: None)
  Receive Date: 20240418
  Receipt Date: 20240418
  Transmission Date: 20240715
  Serious: No
  Sender: FDA-Public Use
  Company Number: US-ROCHE-3508879

PATIENT
  Sex: Male

DRUGS (14)
  1. ESBRIET [Suspect]
     Active Substance: PIRFENIDONE
     Indication: Upper-airway cough syndrome
     Dosage: TAKE 1 TABLET BY MOUTH 3 TIMES A DAY
     Route: 048
  2. ARMODAFINIL [Concomitant]
     Active Substance: ARMODAFINIL
  3. PRAVASTATIN [Concomitant]
     Active Substance: PRAVASTATIN
  4. DICLOFENAC [Concomitant]
     Active Substance: DICLOFENAC
  5. ALBUTEROL [Concomitant]
     Active Substance: ALBUTEROL
  6. CARVEDILOL [Concomitant]
     Active Substance: CARVEDILOL
  7. FLUTICASONE [Concomitant]
     Active Substance: FLUTICASONE
  8. CYCLOBENZAPRINE [Concomitant]
     Active Substance: CYCLOBENZAPRINE
  9. LEVOTHYROXINE [Concomitant]
     Active Substance: LEVOTHYROXINE\LEVOTHYROXINE SODIUM
  10. LISINOPRIL [Concomitant]
     Active Substance: LISINOPRIL
  11. MIRAPEX [Concomitant]
     Active Substance: PRAMIPEXOLE DIHYDROCHLORIDE
  12. MONTELUKAST [Concomitant]
     Active Substance: MONTELUKAST SODIUM
  13. OMEPRAZOLE [Concomitant]
     Active Substance: OMEPRAZOLE
  14. WELLBUTRIN [Concomitant]
     Active Substance: BUPROPION HYDROCHLORIDE

REACTIONS (3)
  - Decreased appetite [Unknown]
  - Weight decreased [Unknown]
  - Off label use [Unknown]
